FAERS Safety Report 6133594-9 (Version None)
Quarter: 2009Q1

REPORT INFORMATION
  Report Type: 
  Country: None (occurrence: None)
  Receive Date: 20090324
  Receipt Date: 20090311
  Transmission Date: 20090719
  Serious: Yes (Other)
  Sender: FDA-Public Use
  Company Number: 2009AL001462

PATIENT
  Age: 61 Year
  Sex: Female

DRUGS (4)
  1. DOXAZOSIN MESYLATE [Suspect]
     Indication: HYPERTENSION
     Dosage: 1 MG; QD, PO
     Route: 048
     Dates: start: 20090114, end: 20090127
  2. ATENOLOL [Concomitant]
  3. PERINDOPRIL ERBUMINE [Concomitant]
  4. TILDIEM LA [Concomitant]

REACTIONS (6)
  - ABDOMINAL DISTENSION [None]
  - BLOOD CREATININE INCREASED [None]
  - DYSPNOEA EXERTIONAL [None]
  - MYALGIA [None]
  - RENAL IMPAIRMENT [None]
  - RHINITIS [None]
